FAERS Safety Report 16401555 (Version 1)
Quarter: 2019Q2

REPORT INFORMATION
  Report Type: Spontaneous
  Country: CA (occurrence: CA)
  Receive Date: 20190606
  Receipt Date: 20190606
  Transmission Date: 20190711
  Serious: Yes (Life-Threatening, Hospitalization)
  Sender: FDA-Public Use
  Company Number: CA-MAYNE PHARMA-2019MYN000509

PATIENT

DRUGS (3)
  1. ERYTHROMYCIN. [Suspect]
     Active Substance: ERYTHROMYCIN
     Dosage: 500 MG, ONCE
  2. CLINDAMYCIN. [Suspect]
     Active Substance: CLINDAMYCIN
     Indication: ENDOCARDITIS PROPHYLAXIS
     Dosage: 600 MG, ONCE
  3. ERYTHROMYCIN. [Suspect]
     Active Substance: ERYTHROMYCIN
     Indication: ENDOCARDITIS PROPHYLAXIS
     Dosage: 1 G, ONCE

REACTIONS (1)
  - Clostridium difficile colitis [Recovering/Resolving]
